FAERS Safety Report 8042949-7 (Version None)
Quarter: 2012Q1

REPORT INFORMATION
  Report Type: 
  Country: None (occurrence: None)
  Receive Date: 20120112
  Receipt Date: 20120109
  Transmission Date: 20120608
  Serious: Yes (Other)
  Sender: FDA-Public Use
  Company Number: US-ABBOTT-11P-163-0861995-00

PATIENT
  Sex: Female
  Weight: 61.744 kg

DRUGS (3)
  1. HUMIRA [Suspect]
     Indication: RHEUMATOID ARTHRITIS
     Route: 058
     Dates: start: 20100306, end: 20110101
  2. UNKNOWN EYE DROPS [Concomitant]
     Indication: GLAUCOMA
  3. HUMIRA [Suspect]
     Dates: start: 20110101

REACTIONS (7)
  - SKIN EXFOLIATION [None]
  - PRURITUS [None]
  - ARTHRALGIA [None]
  - FIBROCYSTIC BREAST DISEASE [None]
  - FUNGAL INFECTION [None]
  - CHONDROPATHY [None]
  - MAMMOGRAM ABNORMAL [None]
